FAERS Safety Report 8033361-5 (Version None)
Quarter: 2012Q1

REPORT INFORMATION
  Report Type: 
  Country: None (occurrence: None)
  Receive Date: 20120110
  Receipt Date: 20120109
  Transmission Date: 20120608
  Serious: No
  Sender: FDA-Public Use
  Company Number: US-PFIZER INC-2012006347

PATIENT
  Sex: Female
  Weight: 90.703 kg

DRUGS (3)
  1. AMOXICILLIN [Concomitant]
     Indication: NASOPHARYNGITIS
     Dosage: UNK
  2. SYMBICORT [Concomitant]
     Indication: ASTHMA
     Dosage: UNK
  3. CHANTIX [Suspect]
     Indication: SMOKING CESSATION THERAPY
     Dosage: 0.5 MG, 1X/DAY
     Route: 048
     Dates: start: 20120106

REACTIONS (1)
  - PRURITUS [None]
